FAERS Safety Report 7650728-5 (Version None)
Quarter: 2011Q3

REPORT INFORMATION
  Report Type: 
  Country: None (occurrence: None)
  Receive Date: 20110802
  Receipt Date: 20110721
  Transmission Date: 20111222
  Serious: Yes (Other)
  Sender: FDA-Public Use
  Company Number: PR-BAYER-2010-007950

PATIENT
  Age: 31 Year
  Sex: Female
  Weight: 68.934 kg

DRUGS (2)
  1. YAZ [Suspect]
     Dosage: UNK
     Route: 048
     Dates: start: 20070601, end: 20070801
  2. YASMIN [Suspect]
     Dosage: UNK
     Route: 048
     Dates: start: 20070601, end: 20070801

REACTIONS (5)
  - GALLBLADDER DISORDER [None]
  - CHOLECYSTITIS CHRONIC [None]
  - PAIN [None]
  - GALLBLADDER PAIN [None]
  - CHOLESTASIS [None]
